FAERS Safety Report 6955682-7 (Version None)
Quarter: 2010Q3

REPORT INFORMATION
  Report Type: 
  Country: None (occurrence: None)
  Receive Date: 20100830
  Receipt Date: 20100817
  Transmission Date: 20110219
  Serious: Yes (Death, Hospitalization)
  Sender: FDA-Public Use
  Company Number: JP-ROCHE-710121

PATIENT
  Sex: Male

DRUGS (3)
  1. CAPECITABINE [Suspect]
     Indication: GASTROOESOPHAGEAL CANCER
     Dosage: NOTE:2 WEEKS ADMINISTRATION FOLLOWED BY 1 WEEK REST
     Route: 048
     Dates: start: 20100217, end: 20100609
  2. CISPLATIN [Suspect]
     Indication: GASTROOESOPHAGEAL CANCER
     Dosage: DOSAGE IS UNCERTAIN.
     Route: 042
     Dates: start: 20100217, end: 20100609
  3. ERBITUX [Concomitant]
     Dosage: DOSAGE IS UNCERTAIN
     Route: 042
     Dates: start: 20100217, end: 20100602

REACTIONS (5)
  - BLOOD PRESSURE DECREASED [None]
  - DISEASE PROGRESSION [None]
  - INFECTION [None]
  - NEUTROPENIA [None]
  - RENAL DISORDER [None]
